FAERS Safety Report 10051427 (Version 1)
Quarter: 2014Q2

REPORT INFORMATION
  Report Type: Spontaneous
  Country: US (occurrence: US)
  Receive Date: 20140401
  Receipt Date: 20140401
  Transmission Date: 20141212
  Serious: Yes (Other)
  Sender: FDA-Public Use
  Company Number: US-PFIZER INC-2014090740

PATIENT
  Age: 57 Year
  Sex: Female

DRUGS (1)
  1. RAPAMUNE [Suspect]
     Indication: LIVER TRANSPLANT
     Dosage: 1 MG, UNK

REACTIONS (2)
  - Transplant rejection [Unknown]
  - Off label use [Unknown]
